FAERS Safety Report 17284083 (Version 1)
Quarter: 2020Q1

REPORT INFORMATION
  Report Type: Spontaneous
  Country: NL (occurrence: NL)
  Receive Date: 20200117
  Receipt Date: 20200117
  Transmission Date: 20200409
  Serious: Yes (Other)
  Sender: FDA-Public Use
  Company Number: NL-JACOBUS PHARMACEUTICAL COMPANY, INC.-2079127

PATIENT
  Age: 0 Year
  Sex: Female
  Weight: 2.2 kg

DRUGS (8)
  1. SIRTURO [Suspect]
     Active Substance: BEDAQUILINE FUMARATE
     Route: 064
     Dates: start: 20190116, end: 20190118
  2. CYCLOSERINE. [Suspect]
     Active Substance: CYCLOSERINE
     Route: 064
     Dates: start: 20190110
  3. MOXIFLOXACIN. [Suspect]
     Active Substance: MOXIFLOXACIN
     Route: 064
     Dates: start: 20190110
  4. CALCIUM CARBONATE; COLECALCIFEROL [Concomitant]
     Route: 064
     Dates: start: 201812
  5. FOLIC ACID. [Concomitant]
     Active Substance: FOLIC ACID
     Route: 064
     Dates: start: 201812
  6. PASER [Suspect]
     Active Substance: AMINOSALICYLIC ACID
     Indication: TUBERCULOSIS
     Dates: start: 20190110
  7. ETHAMBUTOL [Suspect]
     Active Substance: ETHAMBUTOL HYDROCHLORIDE
     Route: 064
     Dates: start: 20190110
  8. PYRAZINAMIDE. [Suspect]
     Active Substance: PYRAZINAMIDE
     Route: 064
     Dates: start: 20190110

REACTIONS (2)
  - Premature baby [Unknown]
  - Foetal exposure during pregnancy [Recovered/Resolved]

NARRATIVE: CASE EVENT DATE: 20190116
